FAERS Safety Report 8913390 (Version 4)
Quarter: 2014Q2

REPORT INFORMATION
  Report Type: Spontaneous
  Country: US (occurrence: US)
  Receive Date: 20121116
  Receipt Date: 20140401
  Transmission Date: 20141212
  Serious: No
  Sender: FDA-Public Use
  Company Number: US-ASTRAZENECA-2012SE85390

PATIENT
  Age: 64 Year
  Sex: Female

DRUGS (9)
  1. NEXIUM [Suspect]
     Indication: GASTROOESOPHAGEAL REFLUX DISEASE
     Route: 048
     Dates: start: 201210
  2. NEXIUM [Suspect]
     Indication: GASTROOESOPHAGEAL REFLUX DISEASE
     Dosage: RECEIVED 40 TABLETS OF NEXIUM INSTEAD OF 60 TABLETS
     Route: 048
     Dates: start: 201304
  3. METOPROLOL [Suspect]
     Indication: BLOOD PRESSURE ABNORMAL
     Route: 065
     Dates: start: 2012
  4. GABAPENTIN [Concomitant]
     Indication: BACK DISORDER
  5. PANEOPRAZOL [Concomitant]
  6. TIZANIDINE [Concomitant]
     Indication: MUSCLE RELAXANT THERAPY
  7. BUTALV-ACEPAMIN [Concomitant]
     Indication: PAIN
  8. BENADRYL [Concomitant]
     Indication: SINUSITIS
  9. DIPHENOXYLATE [Concomitant]
     Indication: DIARRHOEA

REACTIONS (15)
  - Gastrooesophageal reflux disease [Unknown]
  - Regurgitation [Unknown]
  - Aphagia [Unknown]
  - Pain [Unknown]
  - Weight decreased [Unknown]
  - Epistaxis [Unknown]
  - Skin disorder [Unknown]
  - Malaise [Unknown]
  - Eructation [Unknown]
  - Hypersensitivity [Unknown]
  - Diarrhoea [Unknown]
  - Vomiting [Unknown]
  - Drug dispensing error [Unknown]
  - Drug dose omission [Unknown]
  - Intentional product misuse [Unknown]
